FAERS Safety Report 8014445-4 (Version None)
Quarter: 2011Q4

REPORT INFORMATION
  Report Type: 
  Country: None (occurrence: None)
  Receive Date: 20111229
  Receipt Date: 20111221
  Transmission Date: 20120403
  Serious: Yes (Disabling)
  Sender: FDA-Public Use
  Company Number: PHHY2011ES104641

PATIENT
  Age: 66 Year
  Sex: Male

DRUGS (2)
  1. STATINS [Concomitant]
     Dosage: UNK UKN, UNK
  2. GLEEVEC [Suspect]
     Indication: CHRONIC MYELOID LEUKAEMIA
     Dosage: 400 MG, DAILY
     Route: 048

REACTIONS (3)
  - EJECTION FRACTION DECREASED [None]
  - DYSPNOEA [None]
  - CONGESTIVE CARDIOMYOPATHY [None]
